FAERS Safety Report 8109271 (Version 4)
Quarter: 2013Q4

REPORT INFORMATION
  Report Type: Spontaneous
  Country: US (occurrence: US)
  Receive Date: 20110826
  Receipt Date: 20131126
  Transmission Date: 20140711
  Serious: Yes (Hospitalization)
  Sender: FDA-Public Use
  Company Number: US-BAYER-2011-075139

PATIENT
  Age: 34 Year
  Sex: Female

DRUGS (5)
  1. YASMIN [Suspect]
     Dosage: UNK
     Route: 048
     Dates: start: 200801, end: 200803
  2. OCELLA [Suspect]
     Dosage: UNK
     Route: 048
     Dates: start: 200804, end: 201003
  3. METFORMIN HCL [Concomitant]
     Dosage: 500 MG, UNK
     Dates: start: 20090409, end: 20091123
  4. LISINOPRIL [Concomitant]
     Dosage: 10 MG, UNK
     Dates: start: 20090502, end: 20100205
  5. ACTOS [Concomitant]
     Dosage: 15 MG, UNK
     Dates: start: 20091005, end: 20091230

REACTIONS (4)
  - Gallbladder injury [None]
  - Cholecystitis acute [None]
  - Injury [None]
  - Pain [None]
